FAERS Safety Report 22104117 (Version 1)
Quarter: 2023Q1

REPORT INFORMATION
  Report Type: Report from Study
  Country: US (occurrence: US)
  Receive Date: 20230316
  Receipt Date: 20230316
  Transmission Date: 20230417
  Serious: Yes (Other)
  Sender: FDA-Public Use
  Company Number: US-ABBVIE-4343326

PATIENT
  Sex: Female

DRUGS (1)
  1. SKYRIZI [Suspect]
     Active Substance: RISANKIZUMAB-RZAA
     Indication: Product used for unknown indication
     Route: 058

REACTIONS (5)
  - Tendonitis [Recovering/Resolving]
  - Muscle injury [Recovering/Resolving]
  - Buttock injury [Recovering/Resolving]
  - Back disorder [Recovering/Resolving]
  - Tendon rupture [Recovering/Resolving]
